FAERS Safety Report 6265452-3 (Version None)
Quarter: 2009Q3

REPORT INFORMATION
  Report Type: 
  Country: None (occurrence: None)
  Receive Date: 20090713
  Receipt Date: 20090701
  Transmission Date: 20100115
  Serious: Yes (Death)
  Sender: FDA-Public Use
  Company Number: CN-PFIZER INC-2009226806

PATIENT
  Age: 65 Year

DRUGS (1)
  1. SUTENT [Suspect]
     Indication: RENAL CANCER METASTATIC
     Dosage: 50 MG, 2X/DAY, TDD 100 MG
     Route: 048
     Dates: start: 20090525, end: 20090608

REACTIONS (4)
  - ASTHENIA [None]
  - DECREASED APPETITE [None]
  - HEPATORENAL FAILURE [None]
  - MEDICATION ERROR [None]
